FAERS Safety Report 6701696-1 (Version None)
Quarter: 2010Q2

REPORT INFORMATION
  Report Type: 
  Country: None (occurrence: None)
  Receive Date: 20100429
  Receipt Date: 20100329
  Transmission Date: 20101027
  Serious: No
  Sender: FDA-Public Use
  Company Number: US-BAYER-201013714BCC

PATIENT
  Age: 64 Year
  Sex: Female
  Weight: 57 kg

DRUGS (1)
  1. ALEVE (CAPLET) [Suspect]
     Indication: BACK PAIN
     Dosage: UNIT DOSE: 220 MG
     Route: 048
     Dates: start: 20100322

REACTIONS (1)
  - BACK PAIN [None]
